FAERS Safety Report 5623437-1 (Version None)
Quarter: 2008Q1

REPORT INFORMATION
  Report Type: 
  Country: None (occurrence: None)
  Receive Date: 20080207
  Receipt Date: 20080125
  Transmission Date: 20080703
  Serious: Yes (Hospitalization)
  Sender: FDA-Public Use
  Company Number: 08-000151

PATIENT
  Age: 34 Year
  Sex: Female
  Weight: 59.9 kg

DRUGS (5)
  1. LOESTRIN 24 FE [Suspect]
     Indication: CONTRACEPTION
     Dosage: 20/1000 UG, QD, ORAL; 20/1000 UG, QD, ORAL
     Route: 048
     Dates: start: 20070801, end: 20071111
  2. LOESTRIN 24 FE [Suspect]
     Indication: MENORRHAGIA
     Dosage: 20/1000 UG, QD, ORAL; 20/1000 UG, QD, ORAL
     Route: 048
     Dates: start: 20070801, end: 20071111
  3. LOESTRIN 24 FE [Suspect]
     Indication: CONTRACEPTION
     Dosage: 20/1000 UG, QD, ORAL; 20/1000 UG, QD, ORAL
     Route: 048
     Dates: start: 20071212
  4. LOESTRIN 24 FE [Suspect]
     Indication: MENORRHAGIA
     Dosage: 20/1000 UG, QD, ORAL; 20/1000 UG, QD, ORAL
     Route: 048
     Dates: start: 20071212
  5. BUPROPION HCL [Concomitant]

REACTIONS (4)
  - AMENORRHOEA [None]
  - APPENDICECTOMY [None]
  - METRORRHAGIA [None]
  - WITHDRAWAL BLEED [None]
